APPROVED DRUG PRODUCT: METHSCOPOLAMINE BROMIDE
Active Ingredient: METHSCOPOLAMINE BROMIDE
Strength: 5MG
Dosage Form/Route: TABLET;ORAL
Application: A040642 | Product #002 | TE Code: AA
Applicant: BRECKENRIDGE PHARMACEUTICAL INC
Approved: Dec 6, 2011 | RLD: No | RS: No | Type: RX